FAERS Safety Report 5636047-7 (Version None)
Quarter: 2008Q1

REPORT INFORMATION
  Report Type: 
  Country: None (occurrence: None)
  Receive Date: 20080220
  Receipt Date: 20080220
  Transmission Date: 20080703
  Serious: No
  Sender: FDA-Public Use
  Company Number: None

PATIENT
  Age: 63 Year
  Sex: Female
  Weight: 92.9874 kg

DRUGS (1)
  1. CEFDINIR [Suspect]
     Indication: FOOT OPERATION
     Dosage: ONE CAPSULE TWICE DAILY PO
     Route: 048
     Dates: start: 20080212, end: 20080213

REACTIONS (2)
  - DIARRHOEA [None]
  - VOMITING [None]
